FAERS Safety Report 8437886-X (Version None)
Quarter: 2012Q2

REPORT INFORMATION
  Report Type: 
  Country: None (occurrence: None)
  Receive Date: 20120614
  Receipt Date: 20120515
  Transmission Date: 20120825
  Serious: No
  Sender: FDA-Public Use
  Company Number: US-AMGEN-USASP2012022833

PATIENT
  Age: 51 Year
  Sex: Female

DRUGS (10)
  1. MAGNESIUM [Concomitant]
     Dosage: UNK UNK, QD
  2. CALCIUM [Concomitant]
     Dosage: UNK, QD
  3. ASCORBIC ACID [Concomitant]
     Dosage: UNK UNK, QD
  4. BENAZEPRIL HYDROCHLORIDE [Concomitant]
     Dosage: UNK UNK, QD
  5. NIACIN [Concomitant]
  6. PRISTIQ [Concomitant]
     Dosage: UNK UNK, QD
  7. MULTI-VITAMIN [Concomitant]
  8. ASPIRIN [Concomitant]
     Dosage: UNK UNK, QD
  9. FISH OIL [Concomitant]
     Dosage: UNK UNK, QD
  10. PROLIA [Suspect]
     Indication: OSTEOPOROSIS
     Dosage: 60 MG, Q6MO
     Dates: start: 20111201

REACTIONS (5)
  - TOOTHACHE [None]
  - TOOTH FRACTURE [None]
  - PROCEDURAL PAIN [None]
  - PAIN IN JAW [None]
  - GINGIVAL SWELLING [None]
